FAERS Safety Report 6552276-2 (Version None)
Quarter: 2010Q1

REPORT INFORMATION
  Report Type: 
  Country: None (occurrence: None)
  Receive Date: 20100126
  Receipt Date: 20100115
  Transmission Date: 20100710
  Serious: Yes (Other)
  Sender: FDA-Public Use
  Company Number: US-JNJFOC-20100105702

PATIENT
  Age: 39 Year
  Sex: Female
  Weight: 70.31 kg

DRUGS (2)
  1. EXTRA STRENGTH TYLENOL [Suspect]
     Route: 048
  2. EXTRA STRENGTH TYLENOL [Suspect]
     Indication: PROCEDURAL PAIN
     Route: 048

REACTIONS (1)
  - DRUG HYPERSENSITIVITY [None]
